FAERS Safety Report 21635266 (Version 1)
Quarter: 2022Q4

REPORT INFORMATION
  Report Type: Spontaneous
  Country: KR (occurrence: KR)
  Receive Date: 20221123
  Receipt Date: 20221123
  Transmission Date: 20230113
  Serious: Yes (Other)
  Sender: FDA-Public Use
  Company Number: KR-MYLANLABS-2022M1128383

PATIENT
  Age: 33 Year
  Sex: Female

DRUGS (2)
  1. LYRICA [Suspect]
     Active Substance: PREGABALIN
     Indication: Mononeuropathy
     Dosage: 1 DOSAGE FORM, QD
     Route: 065
     Dates: start: 2017, end: 2017
  2. CELECOXIB [Suspect]
     Active Substance: CELECOXIB
     Indication: Mononeuropathy
     Dosage: 1 DOSAGE FORM, QD
     Route: 065
     Dates: start: 2017, end: 2017

REACTIONS (2)
  - Respiratory distress [Recovered/Resolved]
  - Off label use [Unknown]

NARRATIVE: CASE EVENT DATE: 20170101
